FAERS Safety Report 14608087 (Version 1)
Quarter: 2018Q1

REPORT INFORMATION
  Report Type: Spontaneous
  Country: DE (occurrence: DE)
  Receive Date: 20180307
  Receipt Date: 20180307
  Transmission Date: 20180509
  Serious: Yes (Other)
  Sender: FDA-Public Use
  Company Number: DE-TEVA-2018-DE-862990

PATIENT
  Age: 43 Year
  Sex: Female
  Weight: 83 kg

DRUGS (1)
  1. CIPROFLOXACIN. [Suspect]
     Active Substance: CIPROFLOXACIN
     Indication: DIVERTICULITIS
     Dosage: 400MG
     Route: 048
     Dates: start: 20171030

REACTIONS (26)
  - Seizure [Unknown]
  - Dyspnoea [Recovered/Resolved]
  - Palpitations [Recovered/Resolved]
  - Neurological symptom [Unknown]
  - Facial paralysis [Recovered/Resolved]
  - Asthenia [Recovered/Resolved]
  - Hallucination [Unknown]
  - Headache [Unknown]
  - Abdominal discomfort [Unknown]
  - Depression [Unknown]
  - Nausea [Unknown]
  - Dizziness [Not Recovered/Not Resolved]
  - Anxiety [Unknown]
  - Circulatory collapse [Recovered/Resolved]
  - Tremor [Recovered/Resolved]
  - Arthralgia [Recovered/Resolved]
  - Hepatic enzyme increased [Unknown]
  - Tinnitus [Unknown]
  - Fatigue [Recovered/Resolved]
  - Blood count normal [Unknown]
  - Tension headache [Unknown]
  - Cortisol increased [Unknown]
  - Rash [Unknown]
  - Eye pain [Unknown]
  - Sensory disturbance [Unknown]
  - Insomnia [Unknown]

NARRATIVE: CASE EVENT DATE: 20171103
